FAERS Safety Report 6919550-9 (Version None)
Quarter: 2010Q3

REPORT INFORMATION
  Report Type: 
  Country: None (occurrence: None)
  Receive Date: 20100809
  Receipt Date: 20100725
  Transmission Date: 20110219
  Serious: Yes (Death)
  Sender: FDA-Public Use
  Company Number: CAP10000329

PATIENT
  Age: 80 Year
  Sex: Male

DRUGS (3)
  1. ACTONEL [Suspect]
     Indication: ARTHRITIS
  2. ACTONEL [Suspect]
     Indication: SPINAL DISORDER
  3. ALL OTHER THERAPEUTIC PRODUCTS [Concomitant]

REACTIONS (1)
  - LUNG NEOPLASM MALIGNANT [None]
